FAERS Safety Report 7507527-4 (Version None)
Quarter: 2011Q2

REPORT INFORMATION
  Report Type: 
  Country: None (occurrence: None)
  Receive Date: 20110526
  Receipt Date: 20110311
  Transmission Date: 20111010
  Serious: No
  Sender: FDA-Public Use
  Company Number: US-MYLANLABS-2011S1005346

PATIENT
  Age: 62 Year
  Sex: Female
  Weight: 90.72 kg

DRUGS (5)
  1. DIOVAN [Concomitant]
     Indication: BLOOD PRESSURE INCREASED
     Dates: start: 20080101
  2. DILTIAZEM CD [Concomitant]
     Indication: BLOOD PRESSURE INCREASED
     Dates: start: 20080101
  3. ZOLPIDEM TARTRATE [Suspect]
     Indication: INSOMNIA
     Dates: start: 20110301
  4. COLCRYS [Suspect]
     Indication: GOUT
     Dates: start: 20110301
  5. SYNTHROID [Concomitant]
     Indication: HYPOTHYROIDISM
     Dates: start: 20090101

REACTIONS (1)
  - NIGHTMARE [None]
